FAERS Safety Report 6285627-7 (Version None)
Quarter: 2009Q3

REPORT INFORMATION
  Report Type: 
  Country: None (occurrence: None)
  Receive Date: 20090727
  Receipt Date: 20090717
  Transmission Date: 20100115
  Serious: Yes (Hospitalization)
  Sender: FDA-Public Use
  Company Number: US-ABBOTT-09P-163-0586378-00

PATIENT
  Sex: Male
  Weight: 75.364 kg

DRUGS (13)
  1. HUMIRA [Suspect]
     Indication: PSORIATIC ARTHROPATHY
     Dates: start: 20080101, end: 20090717
  2. OXISTAT [Concomitant]
     Indication: DRUG USE FOR UNKNOWN INDICATION
  3. DESAPRONE [Concomitant]
     Indication: DRUG USE FOR UNKNOWN INDICATION
  4. PREVACID [Concomitant]
     Indication: DRUG USE FOR UNKNOWN INDICATION
  5. DIOVAN [Concomitant]
     Indication: DRUG USE FOR UNKNOWN INDICATION
  6. VITAMIN B1 TAB [Concomitant]
     Indication: DRUG USE FOR UNKNOWN INDICATION
  7. NEXIUM [Concomitant]
     Indication: DRUG USE FOR UNKNOWN INDICATION
  8. CYMBALTA [Concomitant]
     Indication: DRUG USE FOR UNKNOWN INDICATION
  9. COLCHICINE [Concomitant]
     Indication: GOUT
  10. GABAPENTIN [Concomitant]
     Indication: DRUG USE FOR UNKNOWN INDICATION
  11. THERARAM [Concomitant]
     Indication: DRUG USE FOR UNKNOWN INDICATION
  12. DUSPRIONE [Concomitant]
     Indication: DRUG USE FOR UNKNOWN INDICATION
  13. IRON [Concomitant]
     Indication: DRUG USE FOR UNKNOWN INDICATION

REACTIONS (7)
  - BLOOD COUNT ABNORMAL [None]
  - BLOOD URINE PRESENT [None]
  - FALL [None]
  - GOUT [None]
  - PSORIASIS [None]
  - RASH [None]
  - RIB FRACTURE [None]
